FAERS Safety Report 18709236 (Version 1)
Quarter: 2021Q1

REPORT INFORMATION
  Report Type: Spontaneous
  Country: FR (occurrence: FR)
  Receive Date: 20210106
  Receipt Date: 20210106
  Transmission Date: 20210419
  Serious: Yes (Death)
  Sender: FDA-Public Use
  Company Number: FR-TEVA-2020-FR-1864874

PATIENT
  Age: 72 Year
  Sex: Male
  Weight: 69 kg

DRUGS (14)
  1. DOXORUBICINE (CHLORHYDRATE DE) [Suspect]
     Active Substance: DOXORUBICIN
     Indication: NON-HODGKIN^S LYMPHOMA
     Dosage: 94MG
     Route: 041
     Dates: start: 20200805, end: 20201119
  2. KARDEGIC [Concomitant]
     Active Substance: ASPIRIN DL-LYSINE
     Dosage: 160MG
     Route: 048
  3. ESOMEPRAZOLE MAGNESIUM TRIHYDRATE [Concomitant]
     Active Substance: ESOMEPRAZOLE MAGNESIUM
     Dosage: 20MG
     Route: 048
  4. BACTRIM [Concomitant]
     Active Substance: SULFAMETHOXAZOLE\TRIMETHOPRIM
     Dosage: 3 DOSAGE FORMS
     Route: 048
  5. CITALOPRAM (BROMHYDRATE DE) [Concomitant]
     Active Substance: CITALOPRAM HYDROBROMIDE
     Dosage: 20MG
     Route: 048
  6. ENDOXAN [Suspect]
     Active Substance: CYCLOPHOSPHAMIDE
     Indication: NON-HODGKIN^S LYMPHOMA
     Dosage: 1300MG
     Route: 041
     Dates: start: 20200805, end: 20201119
  7. ORACILLINE [Concomitant]
     Active Substance: PENICILLIN V
     Route: 048
  8. TAHOR [Concomitant]
     Active Substance: ATORVASTATIN CALCIUM
     Dosage: 40MG
     Route: 048
  9. ACIDE FOLIQUE [Concomitant]
     Active Substance: FOLIC ACID
     Dosage: 10MG
     Route: 048
  10. VINCRISTINE HOSPIRA 2 MG/2 ML, SOLUTION INJECTABLE [Suspect]
     Active Substance: VINCRISTINE SULFATE
     Indication: NON-HODGKIN^S LYMPHOMA
     Dosage: 0.5MG
     Route: 041
     Dates: start: 20200805, end: 20201119
  11. METHYLPREDNISOLONE. [Concomitant]
     Active Substance: METHYLPREDNISOLONE
     Route: 041
  12. TRUXIMA [Suspect]
     Active Substance: RITUXIMAB-ABBS
     Indication: NON-HODGKIN^S LYMPHOMA
     Dosage: 700MG
     Route: 041
     Dates: start: 20200805, end: 20201119
  13. BINOCRIT 30 000 UI/0,75 ML, SOLUTION INJECTABLE EN SERINGUE PREREMPLIE [Suspect]
     Active Substance: ERYTHROPOIETIN
     Indication: ANAEMIA
     Dosage: 30000IU
     Route: 058
     Dates: start: 20201123, end: 20201123
  14. VALACICLOVIR (CHLORHYDRATE DE) [Concomitant]
     Active Substance: VALACYCLOVIR HYDROCHLORIDE
     Dosage: 500MG
     Route: 048

REACTIONS (3)
  - Vomiting [Fatal]
  - Pyrexia [Fatal]
  - Sudden death [Fatal]

NARRATIVE: CASE EVENT DATE: 20201123
